FAERS Safety Report 7617082-6 (Version None)
Quarter: 2011Q3

REPORT INFORMATION
  Report Type: 
  Country: None (occurrence: None)
  Receive Date: 20110718
  Receipt Date: 20110705
  Transmission Date: 20111222
  Serious: Yes (Hospitalization, Disabling)
  Sender: FDA-Public Use
  Company Number: US-ELI_LILLY_AND_COMPANY-US201011005467

PATIENT
  Sex: Female

DRUGS (9)
  1. FORTEO [Suspect]
     Dosage: 20 UG, QD
     Route: 058
  2. ADVAIR DISKUS 100/50 [Concomitant]
  3. HYDROCHLOROTHIAZIDE [Concomitant]
     Dosage: 12.5 MG, UNK
  4. VICODIN [Concomitant]
  5. MELOXICAM [Concomitant]
  6. CALTRATE + VITAMIN D [Concomitant]
  7. ANALGESICS [Concomitant]
     Indication: PAIN
  8. VALIUM [Concomitant]
  9. FORTEO [Suspect]
     Indication: OSTEOPOROSIS
     Dosage: 20 UG, DAILY (1/D)
     Route: 058
     Dates: start: 20101101

REACTIONS (7)
  - GAIT DISTURBANCE [None]
  - OEDEMA PERIPHERAL [None]
  - DYSPNOEA [None]
  - PNEUMONIA [None]
  - CHRONIC OBSTRUCTIVE PULMONARY DISEASE [None]
  - SKIN DISORDER [None]
  - NASOPHARYNGITIS [None]
